FAERS Safety Report 14012514 (Version 1)
Quarter: 2017Q3

REPORT INFORMATION
  Report Type: Spontaneous
  Country: US (occurrence: US)
  Receive Date: 20170926
  Receipt Date: 20170926
  Transmission Date: 20171128
  Serious: No
  Sender: FDA-Public Use
  Company Number: US-MISSION PHARMACAL COMPANY-2027736

PATIENT
  Age: 43 Year
  Sex: Female

DRUGS (1)
  1. THIOLA [Suspect]
     Active Substance: TIOPRONIN
     Indication: CYSTINURIA
     Route: 065
     Dates: start: 20170420

REACTIONS (6)
  - Pruritus [Unknown]
  - Drug dose omission [Unknown]
  - Incorrect dose administered [Unknown]
  - Fluid intake reduced [Unknown]
  - Rash [Unknown]
  - Malaise [Unknown]
